FAERS Safety Report 11867732 (Version 2)
Quarter: 2016Q1

REPORT INFORMATION
  Report Type: Spontaneous
  Country: JP (occurrence: JP)
  Receive Date: 20151224
  Receipt Date: 20160115
  Transmission Date: 20160526
  Serious: Yes (Other)
  Sender: FDA-Public Use
  Company Number: PHHY2015JP167663

PATIENT
  Age: 59 Year
  Sex: Female

DRUGS (16)
  1. LEVOMEPROMAZINE [Interacting]
     Active Substance: LEVOMEPROMAZINE
     Indication: DEPRESSION
     Dosage: 5 MG, UNK
     Route: 065
  2. REMIFENTANIL [Interacting]
     Active Substance: REMIFENTANIL
     Indication: GENERAL ANAESTHESIA
     Dosage: 0.25 UG/KG/MIN
     Route: 065
  3. DEXAMETHASONE. [Interacting]
     Active Substance: DEXAMETHASONE
     Indication: LOCAL ANAESTHESIA
     Dosage: 6.6 MG, UNK
     Route: 065
  4. FLUNITRAZEPAM [Interacting]
     Active Substance: FLUNITRAZEPAM
     Indication: DEPRESSION
     Dosage: 2 MG, UNK
     Route: 065
  5. BROMAZEPAM [Interacting]
     Active Substance: BROMAZEPAM
     Indication: DEPRESSION
     Dosage: 2 MG, UNK
     Route: 065
  6. OLANZAPINE. [Interacting]
     Active Substance: OLANZAPINE
     Indication: DEPRESSION
     Dosage: 5 MG, UNK
     Route: 065
  7. LITHIUM CARBONATE. [Interacting]
     Active Substance: LITHIUM CARBONATE
     Indication: DEPRESSION
     Dosage: 200 MG, UNK
     Route: 065
  8. PROPOFOL. [Interacting]
     Active Substance: PROPOFOL
     Indication: GENERAL ANAESTHESIA
     Dosage: 120 MG, UNK
     Route: 065
  9. BUPIVACAINE [Suspect]
     Active Substance: BUPIVACAINE
     Indication: LOCAL ANAESTHESIA
     Dosage: 3.5 ML, UNK
     Route: 041
  10. VALPROATE SODIUM. [Interacting]
     Active Substance: VALPROATE SODIUM
     Indication: DEPRESSION
     Dosage: 200 MG, UNK
     Route: 065
  11. DROPERIDOL. [Interacting]
     Active Substance: DROPERIDOL
     Indication: LOCAL ANAESTHESIA
     Dosage: 1.25 MG,
     Route: 065
  12. CLOMIPRAMINE [Interacting]
     Active Substance: CLOMIPRAMINE
     Indication: DEPRESSION
     Dosage: 30 MG, UNK
     Route: 065
  13. ETHYL LOFLAZEPATE [Interacting]
     Active Substance: ETHYL LOFLAZEPATE
     Indication: DEPRESSION
     Dosage: 1 MG, UNK
     Route: 065
  14. ROCURONIUM BROMIDE. [Interacting]
     Active Substance: ROCURONIUM BROMIDE
     Indication: GENERAL ANAESTHESIA
     Dosage: 40 MG, UNK
     Route: 065
  15. FENTANYL. [Interacting]
     Active Substance: FENTANYL
     Indication: LOCAL ANAESTHESIA
     Dosage: 0.1 MG, UNK
     Route: 065
  16. SEVOFLURANE. [Interacting]
     Active Substance: SEVOFLURANE
     Indication: ANAESTHESIA
     Dosage: 1.5 UNK, UNK
     Route: 065

REACTIONS (2)
  - Hypotension [Recovered/Resolved]
  - Drug interaction [Recovering/Resolving]
